FAERS Safety Report 6956376-4 (Version None)
Quarter: 2010Q3

REPORT INFORMATION
  Report Type: 
  Country: None (occurrence: None)
  Receive Date: 20100830
  Receipt Date: 20100818
  Transmission Date: 20110219
  Serious: Yes (Other)
  Sender: FDA-Public Use
  Company Number: A0877971A

PATIENT
  Sex: Male

DRUGS (2)
  1. LAMOTRIGINE [Suspect]
     Dosage: 200MG PER DAY
     Route: 065
     Dates: start: 20100707
  2. DILANTIN [Suspect]
     Dosage: 250MG PER DAY
     Route: 065

REACTIONS (6)
  - CHEST PAIN [None]
  - CONVULSION [None]
  - DYSKINESIA [None]
  - LOSS OF CONTROL OF LEGS [None]
  - MUSCLE TWITCHING [None]
  - RASH [None]
